FAERS Safety Report 15357920 (Version 1)
Quarter: 2018Q3

REPORT INFORMATION
  Report Type: Spontaneous
  Country: AT (occurrence: AT)
  Receive Date: 20180906
  Receipt Date: 20180906
  Transmission Date: 20181010
  Serious: Yes (Hospitalization)
  Sender: FDA-Public Use
  Company Number: PHHY2018AT090252

PATIENT
  Age: 63 Year
  Sex: Female

DRUGS (2)
  1. PENICILLIN SANDOZ [Suspect]
     Active Substance: PENICILLIN
     Indication: PRODUCT USED FOR UNKNOWN INDICATION
     Route: 065
  2. HUMIRA [Suspect]
     Active Substance: ADALIMUMAB
     Indication: CROHN^S DISEASE
     Dosage: 40 MG, (14 DAYS)
     Route: 058
     Dates: start: 20180403

REACTIONS (4)
  - Abdominal pain [Recovering/Resolving]
  - Fistula [Recovered/Resolved]
  - Pruritus [Recovering/Resolving]
  - Sleep disorder [Recovering/Resolving]

NARRATIVE: CASE EVENT DATE: 20180403
